FAERS Safety Report 4421039-6 (Version None)
Quarter: 2004Q3

REPORT INFORMATION
  Report Type: 
  Country: None (occurrence: None)
  Receive Date: 20040803
  Receipt Date: 20040719
  Transmission Date: 20050211
  Serious: Yes (Disabling)
  Sender: FDA-Public Use
  Company Number: K200401071

PATIENT
  Age: 58 Year

DRUGS (2)
  1. SEPTRA [Suspect]
     Indication: PNEUMOCYSTIS CARINII PNEUMONIA
     Dosage: 115 MG/KG, QD, INTRAVENOUS
     Route: 042
  2. PIRACETAM (PIRACETAM) [Concomitant]

REACTIONS (5)
  - ABASIA [None]
  - CONFUSIONAL STATE [None]
  - DISORIENTATION [None]
  - MYOCLONUS [None]
  - NEUROLOGICAL SYMPTOM [None]
